FAERS Safety Report 5943671-0 (Version None)
Quarter: 2008Q4

REPORT INFORMATION
  Report Type: 
  Country: None (occurrence: None)
  Receive Date: 20081106
  Receipt Date: 20081029
  Transmission Date: 20090506
  Serious: Yes (Other)
  Sender: FDA-Public Use
  Company Number: US-JNJFOC-20081100314

PATIENT
  Age: 81 Year
  Sex: Female
  Weight: 40.82 kg

DRUGS (9)
  1. EXTRA STRENGTH TYLENOL [Suspect]
     Route: 048
  2. EXTRA STRENGTH TYLENOL [Suspect]
     Indication: BACK PAIN
     Dosage: ^CUT IN HALF^
     Route: 048
  3. LISINOPRIL [Concomitant]
  4. LEVOTHYROXINE SODIUM [Concomitant]
  5. METOPROLOL TARTRATE [Concomitant]
     Dosage: 1/4 PILL, TWICE DAILY
  6. PLAVIX [Concomitant]
  7. ASPIRIN [Concomitant]
  8. VITAMIN D [Concomitant]
     Dosage: 400 UNITS, ONCE DAILY
  9. CHOLESTOFF [Concomitant]

REACTIONS (4)
  - CHOKING [None]
  - DYSPNOEA [None]
  - FOREIGN BODY TRAUMA [None]
  - WRONG TECHNIQUE IN DRUG USAGE PROCESS [None]
